FAERS Safety Report 25228161 (Version 2)
Quarter: 2025Q2

REPORT INFORMATION
  Report Type: Spontaneous
  Country: US (occurrence: US)
  Receive Date: 20250423
  Receipt Date: 20250502
  Transmission Date: 20250716
  Serious: Yes (Hospitalization)
  Sender: TEVA
  Company Number: US-TEVA-VS-3324144

PATIENT
  Age: 34 Year
  Sex: Male

DRUGS (4)
  1. CLOPIDOGREL [Suspect]
     Active Substance: CLOPIDOGREL BISULFATE
     Indication: Myocardial infarction
     Route: 065
  2. HEPARIN [Suspect]
     Active Substance: HEPARIN SODIUM
     Indication: Myocardial infarction
     Route: 065
  3. ASPIRIN [Suspect]
     Active Substance: ASPIRIN
     Indication: Myocardial infarction
     Route: 065
  4. CLOMIPHENE [Suspect]
     Active Substance: CLOMIPHENE
     Indication: Blood testosterone decreased
     Route: 065

REACTIONS (4)
  - Myocardial infarction [Unknown]
  - Drug ineffective [Unknown]
  - Heart failure with reduced ejection fraction [Unknown]
  - Thrombosis [Unknown]
